FAERS Safety Report 17230105 (Version 1)
Quarter: 2020Q1

REPORT INFORMATION
  Report Type: Spontaneous
  Country: US (occurrence: US)
  Receive Date: 20200103
  Receipt Date: 20200103
  Transmission Date: 20200409
  Serious: No
  Sender: FDA-Public Use
  Company Number: None

PATIENT
  Age: 67 Year
  Sex: Male
  Weight: 114 kg

DRUGS (6)
  1. HEPARIN [Suspect]
     Active Substance: HEPARIN SODIUM
  2. HEPARIN [Suspect]
     Active Substance: HEPARIN SODIUM
  3. HEPARIN [Suspect]
     Active Substance: HEPARIN SODIUM
  4. HEPARIN [Suspect]
     Active Substance: HEPARIN SODIUM
     Route: 042
  5. HEPARIN [Suspect]
     Active Substance: HEPARIN SODIUM
     Indication: PERCUTANEOUS CORONARY INTERVENTION
     Route: 042
     Dates: start: 20191111
  6. HEPARIN [Suspect]
     Active Substance: HEPARIN SODIUM

REACTIONS (1)
  - Therapeutic product effect decreased [None]

NARRATIVE: CASE EVENT DATE: 20191111
